FAERS Safety Report 17876815 (Version 1)
Quarter: 2020Q2

REPORT INFORMATION
  Report Type: Spontaneous
  Country: US (occurrence: US)
  Receive Date: 20200609
  Receipt Date: 20200609
  Transmission Date: 20200714
  Serious: No
  Sender: FDA-Public Use
  Company Number: US-SA-2020SA146394

PATIENT

DRUGS (1)
  1. LANTUS [Suspect]
     Active Substance: INSULIN GLARGINE
     Indication: TYPE 2 DIABETES MELLITUS
     Dosage: BID (10 UNITS AND 30 UNITS) (MORNING AND NIGHT), MANY YEARS AGO

REACTIONS (2)
  - Product contamination with body fluid [Unknown]
  - Inappropriate schedule of product administration [Unknown]
